FAERS Safety Report 16329525 (Version 2)
Quarter: 2019Q3

REPORT INFORMATION
  Report Type: Report from Study
  Country: US (occurrence: US)
  Receive Date: 20190520
  Receipt Date: 20190801
  Transmission Date: 20191004
  Serious: No
  Sender: FDA-Public Use
  Company Number: US-ALEXION PHARMACEUTICALS INC.-A201907308

PATIENT
  Sex: Male

DRUGS (1)
  1. SOLIRIS [Suspect]
     Active Substance: ECULIZUMAB
     Indication: PRODUCT USED FOR UNKNOWN INDICATION
     Route: 065

REACTIONS (7)
  - Skin exfoliation [Unknown]
  - Skin disorder [Not Recovered/Not Resolved]
  - Blood pressure increased [Unknown]
  - Myalgia [Not Recovered/Not Resolved]
  - Skin burning sensation [Unknown]
  - Peripheral swelling [Unknown]
  - Pain in extremity [Unknown]
